FAERS Safety Report 21919696 (Version 2)
Quarter: 2023Q1

REPORT INFORMATION
  Report Type: Spontaneous
  Country: JP (occurrence: JP)
  Receive Date: 20230127
  Receipt Date: 20230221
  Transmission Date: 20230418
  Serious: Yes (Other)
  Sender: FDA-Public Use
  Company Number: JP-OTSUKA-2023_001974

PATIENT
  Age: 6 Decade
  Sex: Male

DRUGS (3)
  1. REXULTI [Suspect]
     Active Substance: BREXPIPRAZOLE
     Indication: Product used for unknown indication
     Dosage: 2, UNK
     Route: 065
  2. RISPERIDONE [Suspect]
     Active Substance: RISPERIDONE
     Indication: Product used for unknown indication
     Dosage: 3, UNK
     Route: 065
  3. QUETIAPINE FUMARATE [Suspect]
     Active Substance: QUETIAPINE FUMARATE
     Indication: Product used for unknown indication
     Dosage: 50, UNK
     Route: 065

REACTIONS (11)
  - Hallucination, auditory [Unknown]
  - General physical condition abnormal [Recovering/Resolving]
  - Persecutory delusion [Unknown]
  - Irritability [Unknown]
  - Palpitations [Unknown]
  - Headache [Unknown]
  - Tension [Unknown]
  - Anxiety [Unknown]
  - Insomnia [Recovering/Resolving]
  - Dizziness [Unknown]
  - Treatment noncompliance [Unknown]
